FAERS Safety Report 5201050-8 (Version None)
Quarter: 2007Q1

REPORT INFORMATION
  Report Type: 
  Country: None (occurrence: None)
  Receive Date: 20070108
  Receipt Date: 20070103
  Transmission Date: 20070707
  Serious: Yes (Death, Hospitalization)
  Sender: FDA-Public Use
  Company Number: US-ELI_LILLY_AND_COMPANY-US200608005350

PATIENT
  Age: 63 Year
  Sex: Male
  Weight: 151.47 kg

DRUGS (4)
  1. ZYPREXA [Suspect]
     Indication: SCHIZOPHRENIA
     Dates: start: 20020101, end: 20040101
  2. QUETIAPINE FUMARATE [Concomitant]
     Dates: start: 20030101
  3. PERPHENAZINE [Concomitant]
     Dates: start: 20040101, end: 20060101
  4. NEFAZODONE HCL [Concomitant]
     Dates: start: 20030101, end: 20060101

REACTIONS (4)
  - CARDIAC FAILURE CONGESTIVE [None]
  - CORONARY ARTERY BYPASS [None]
  - DEATH [None]
  - DIABETES MELLITUS [None]
